FAERS Safety Report 16851969 (Version 1)
Quarter: 2019Q3

REPORT INFORMATION
  Report Type: Spontaneous
  Country: US (occurrence: US)
  Receive Date: 20190925
  Receipt Date: 20190925
  Transmission Date: 20191005
  Serious: Yes (Hospitalization)
  Sender: FDA-Public Use
  Company Number: US-TEVA-2019-US-1112086

PATIENT
  Age: 83 Year
  Sex: Male

DRUGS (4)
  1. HIGH-DOSE INSULIN [Suspect]
     Active Substance: INSULIN NOS
     Indication: CARDIOGENIC SHOCK
     Route: 065
  2. SOTALOL. [Suspect]
     Active Substance: SOTALOL
     Dosage: PILLS
     Route: 065
  3. LORAZEPAM. [Concomitant]
     Active Substance: LORAZEPAM
     Dosage: PILLS
     Route: 065
  4. EPINEPHRINE. [Concomitant]
     Active Substance: EPINEPHRINE
     Indication: CARDIOGENIC SHOCK
     Route: 065

REACTIONS (6)
  - Toxicity to various agents [Recovering/Resolving]
  - Unresponsive to stimuli [Recovering/Resolving]
  - Hypoglycaemia [Recovering/Resolving]
  - Cardiogenic shock [Recovering/Resolving]
  - Intentional overdose [Unknown]
  - Electrocardiogram QT prolonged [Recovering/Resolving]
